FAERS Safety Report 4779059-8 (Version None)
Quarter: 2005Q3

REPORT INFORMATION
  Report Type: 
  Country: None (occurrence: None)
  Receive Date: 20050923
  Receipt Date: 20050916
  Transmission Date: 20060218
  Serious: Yes (Other)
  Sender: FDA-Public Use
  Company Number: FR-2005-019319

PATIENT
  Sex: Female

DRUGS (1)
  1. JASMINE (DROSPIRENONE, ETHINYLESTRADIOL) FILM TABLET [Suspect]
     Dosage: 1 TAB (S), 21D/28D, ORAL
     Route: 048

REACTIONS (2)
  - COMA [None]
  - FACIAL PALSY [None]
